FAERS Safety Report 12272190 (Version 2)
Quarter: 2016Q3

REPORT INFORMATION
  Report Type: Spontaneous
  Country: US (occurrence: US)
  Receive Date: 20160415
  Receipt Date: 20160720
  Transmission Date: 20161109
  Serious: Yes (Other)
  Sender: FDA-Public Use
  Company Number: US-SAGENTPRD-2016-US-000007

PATIENT
  Age: 74 Year
  Sex: Male
  Weight: 96 kg

DRUGS (14)
  1. TAMSULOSIN [Concomitant]
     Active Substance: TAMSULOSIN
  2. NIFEDIPINE. [Concomitant]
     Active Substance: NIFEDIPINE
  3. PHENOL. [Concomitant]
     Active Substance: PHENOL
  4. ISOSORBIDE MONONITRATE. [Concomitant]
     Active Substance: ISOSORBIDE MONONITRATE
  5. VALACYCLOVIR [Concomitant]
     Active Substance: VALACYCLOVIR HYDROCHLORIDE
  6. HEPARIN SODIUM INJECTION, MDV, 30 ML, 1000 U/ML [Suspect]
     Active Substance: HEPARIN SODIUM
     Dosage: DOSE TITRATED
     Route: 042
     Dates: start: 20160409, end: 20160409
  7. CARVEDILOL. [Concomitant]
     Active Substance: CARVEDILOL
  8. FUROSEMIDE. [Concomitant]
     Active Substance: FUROSEMIDE
  9. ASPIRIN. [Concomitant]
     Active Substance: ASPIRIN
  10. DOCUSATE [Concomitant]
     Active Substance: DOCUSATE
  11. HEPARIN SODIUM INJECTION, MDV, 30 ML, 1000 U/ML [Suspect]
     Active Substance: HEPARIN SODIUM
     Dosage: DOSE TITRATED
     Route: 042
     Dates: start: 20160409, end: 20160409
  12. APIXABAN [Concomitant]
     Active Substance: APIXABAN
  13. PANTOPRAZOLE [Concomitant]
     Active Substance: PANTOPRAZOLE SODIUM
  14. HEPARIN SODIUM INJECTION, MDV, 30 ML, 1000 U/ML [Suspect]
     Active Substance: HEPARIN SODIUM
     Dosage: DOSE TITRATED
     Route: 042
     Dates: start: 20160409, end: 20160409

REACTIONS (1)
  - Drug ineffective [Unknown]

NARRATIVE: CASE EVENT DATE: 20160409
